FAERS Safety Report 7641595-4 (Version None)
Quarter: 2011Q3

REPORT INFORMATION
  Report Type: 
  Country: None (occurrence: None)
  Receive Date: 20110728
  Receipt Date: 20110722
  Transmission Date: 20111222
  Serious: Yes (Death)
  Sender: FDA-Public Use
  Company Number: DK-ROXANE LABORATORIES, INC.-2011-RO-01045RO

PATIENT
  Age: 58 Year

DRUGS (7)
  1. FLUNITRAZEPAM [Suspect]
  2. DIAZEPAM [Suspect]
  3. KETOBEMIDONE [Suspect]
  4. AMLODIPINE BESYLATE [Suspect]
  5. CITALOPRAM HYDROBROMIDE [Suspect]
  6. ALPRAZOLAM [Suspect]
  7. MIANSERINE [Suspect]

REACTIONS (1)
  - DEATH [None]
